FAERS Safety Report 19479843 (Version 1)
Quarter: 2021Q2

REPORT INFORMATION
  Report Type: Spontaneous
  Country: MX (occurrence: MX)
  Receive Date: 20210630
  Receipt Date: 20210630
  Transmission Date: 20210717
  Serious: Yes (Death, Hospitalization)
  Sender: FDA-Public Use
  Company Number: MX-FRESENIUS KABI-FK202106633

PATIENT
  Age: 66 Year
  Sex: Female

DRUGS (2)
  1. CARBOPLATIN (MANUFACTURER UNKNOWN) [Suspect]
     Active Substance: CARBOPLATIN
     Indication: INVASIVE DUCTAL BREAST CARCINOMA
     Route: 065
  2. PACLITAXEL (MANUFACTURER UNKNOWN) [Suspect]
     Active Substance: PACLITAXEL
     Indication: INVASIVE DUCTAL BREAST CARCINOMA
     Route: 065

REACTIONS (4)
  - Pulmonary fibrosis [Fatal]
  - Respiratory failure [Fatal]
  - Pneumocystis jirovecii pneumonia [Fatal]
  - Respiratory arrest [Fatal]
